FAERS Safety Report 5815137-X (Version None)
Quarter: 2008Q3

REPORT INFORMATION
  Report Type: 
  Country: None (occurrence: None)
  Receive Date: 20080718
  Receipt Date: 20080711
  Transmission Date: 20090109
  Serious: Yes (Other)
  Sender: FDA-Public Use
  Company Number: US-PURDUE-USA_2008_0033909

PATIENT
  Sex: Male

DRUGS (2)
  1. OXYCONTIN [Suspect]
     Indication: DRUG ABUSE
     Dosage: UNK MG, UNK
  2. ROXICODONE [Suspect]
     Indication: DRUG ABUSE
     Dosage: UNK MG, UNK

REACTIONS (8)
  - DRUG DEPENDENCE [None]
  - DRUG WITHDRAWAL SYNDROME [None]
  - HYPERHIDROSIS [None]
  - INJECTION SITE INJURY [None]
  - INTENTIONAL DRUG MISUSE [None]
  - PAIN [None]
  - TREMOR [None]
  - VOMITING [None]
